FAERS Safety Report 9555349 (Version 2)
Quarter: 2013Q4

REPORT INFORMATION
  Report Type: Spontaneous
  Country: FR (occurrence: FR)
  Receive Date: 20130926
  Receipt Date: 20131007
  Transmission Date: 20140711
  Serious: No
  Sender: FDA-Public Use
  Company Number: FR-JNJFOC-20130912942

PATIENT
  Age: 54 Year
  Sex: Female

DRUGS (1)
  1. DUROGESIC [Suspect]
     Indication: FIBROMYALGIA
     Route: 062
     Dates: start: 20130918

REACTIONS (2)
  - Product quality issue [Unknown]
  - Wrong technique in drug usage process [Unknown]
